FAERS Safety Report 9295758 (Version 1)
Quarter: 2013Q1

REPORT INFORMATION
  Report Type: Spontaneous
  Country: US (occurrence: None)
  Receive Date: 20121220
  Receipt Date: 20121220
  Transmission Date: 20140127
  Serious: No
  Sender: FDA-Public Use
  Company Number: 1203USA02697

PATIENT
  Age: 62 Year
  Sex: Male

DRUGS (2)
  1. ZETIA [Suspect]
     Indication: HYPERLIPIDAEMIA
     Route: 048
     Dates: start: 201111, end: 201112
  2. DIOVAN (VALSARTAN) [Concomitant]

REACTIONS (1)
  - Hepatic enzyme increased [None]
